FAERS Safety Report 20801468 (Version 2)
Quarter: 2025Q3

REPORT INFORMATION
  Report Type: Spontaneous
  Country: EU (occurrence: EU)
  Receive Date: 20220509
  Receipt Date: 20250929
  Transmission Date: 20251020
  Serious: Yes (Hospitalization)
  Sender: MYLAN
  Company Number: EU-ROCHE-3060512

PATIENT
  Age: 68 Year
  Sex: Female
  Weight: 62 kg

DRUGS (17)
  1. OXALIPLATIN [Suspect]
     Active Substance: OXALIPLATIN
     Indication: Adenocarcinoma of colon
  2. OXALIPLATIN [Suspect]
     Active Substance: OXALIPLATIN
  3. OXALIPLATIN [Suspect]
     Active Substance: OXALIPLATIN
  4. OXALIPLATIN [Suspect]
     Active Substance: OXALIPLATIN
  5. CAPECITABINE [Suspect]
     Active Substance: CAPECITABINE
     Indication: Adenocarcinoma of colon
     Dosage: 1750 MILLIGRAM, BID (FIRST CYCLE)
  6. CAPECITABINE [Suspect]
     Active Substance: CAPECITABINE
     Dosage: 1500 MILLIGRAM, BID (SECOND CYCLE)
  7. CAPECITABINE [Suspect]
     Active Substance: CAPECITABINE
  8. CAPECITABINE [Suspect]
     Active Substance: CAPECITABINE
  9. CAPECITABINE [Suspect]
     Active Substance: CAPECITABINE
  10. ASPIRIN [Concomitant]
     Active Substance: ASPIRIN
     Dosage: 100 MILLIGRAM, QD (1-0-0)
  11. CANDESARTAN [Concomitant]
     Active Substance: CANDESARTAN
     Dosage: 16 MILLIGRAM, QD (0.5-0-0)
  12. ONDANSETRON [Concomitant]
     Active Substance: ONDANSETRON
  13. ONDANSETRON [Concomitant]
     Active Substance: ONDANSETRON
  14. CITALOPRAM [Concomitant]
     Active Substance: CITALOPRAM
     Indication: Panic attack
     Dosage: 20 MILLIGRAM, QD (1-0-0)
  15. METOCLOPRAMIDE [Concomitant]
     Active Substance: METOCLOPRAMIDE
  16. DEXAMETHASONE [Concomitant]
     Active Substance: DEXAMETHASONE
  17. APREPITANT [Concomitant]
     Active Substance: APREPITANT

REACTIONS (7)
  - Diarrhoea [Unknown]
  - Asthenia [Unknown]
  - Nausea [Unknown]
  - Fatigue [Unknown]
  - Weight decreased [Recovering/Resolving]
  - Decreased appetite [Unknown]
  - Dysphagia [Unknown]
